FAERS Safety Report 15160923 (Version 2)
Quarter: 2018Q3

REPORT INFORMATION
  Report Type: Report from Study
  Country: US (occurrence: US)
  Receive Date: 20180718
  Receipt Date: 20180813
  Transmission Date: 20181010
  Serious: Yes (Other)
  Sender: FDA-Public Use
  Company Number: PHEH2018US028812

PATIENT
  Sex: Female

DRUGS (1)
  1. GILENYA [Suspect]
     Active Substance: FINGOLIMOD HYDROCHLORIDE
     Indication: MULTIPLE SCLEROSIS
     Dosage: 0.5 MG, QD
     Route: 048
     Dates: start: 20180329

REACTIONS (6)
  - Weight decreased [Unknown]
  - Drug ineffective [Unknown]
  - Fatigue [Unknown]
  - Lung neoplasm malignant [Not Recovered/Not Resolved]
  - Weight increased [Unknown]
  - Joint swelling [Unknown]
